FAERS Safety Report 10032867 (Version 2)
Quarter: 2014Q2

REPORT INFORMATION
  Report Type: Report from Study
  Country: US (occurrence: US)
  Receive Date: 20140324
  Receipt Date: 20140414
  Transmission Date: 20141212
  Serious: Yes (Other)
  Sender: FDA-Public Use
  Company Number: US-ALEXION PHARMACEUTICALS INC.-A201400888

PATIENT
  Sex: 0

DRUGS (10)
  1. SOLIRIS [Suspect]
     Indication: HAEMOLYTIC URAEMIC SYNDROME
     Dosage: 900 MG, QW
     Route: 042
     Dates: start: 20140306
  2. ASPIRIN [Concomitant]
     Indication: ANTICOAGULANT THERAPY
     Dosage: 325 MG, QD
     Route: 065
  3. AVAPRO [Concomitant]
     Indication: DRUG THERAPY
     Dosage: 300 MG, QD
     Route: 065
  4. CARAFATE [Concomitant]
     Indication: PRODUCT USED FOR UNKNOWN INDICATION
     Dosage: 300 MG, TID
     Route: 065
  5. CLONIDINE [Concomitant]
     Indication: DRUG THERAPY
     Dosage: 0.1 MG, QID
     Route: 065
  6. CRESTOR [Concomitant]
     Indication: PRODUCT USED FOR UNKNOWN INDICATION
     Dosage: 10 MG, BID
     Route: 065
  7. LISINOPRIL [Concomitant]
     Indication: DRUG THERAPY
     Dosage: 40 MG, BID
     Route: 065
  8. METOPROLOL [Concomitant]
     Indication: DRUG THERAPY
     Dosage: 12.5 MG, BID
     Route: 065
  9. PRORENAL [Concomitant]
     Indication: PRODUCT USED FOR UNKNOWN INDICATION
     Dosage: UNK, BID
     Route: 065
  10. RANITIDINE [Concomitant]
     Indication: PRODUCT USED FOR UNKNOWN INDICATION
     Dosage: 150 MG, UNK
     Route: 065

REACTIONS (9)
  - Headache [Recovered/Resolved]
  - Lip swelling [Recovered/Resolved]
  - Hypersensitivity [Recovered/Resolved]
  - Pharyngeal oedema [Recovered/Resolved]
  - Lymphoedema [Recovered/Resolved]
  - Urticaria [Recovered/Resolved]
  - Pruritus [Recovered/Resolved]
  - Rash [Recovered/Resolved]
  - Rhinorrhoea [Recovered/Resolved]
